FAERS Safety Report 18540422 (Version 8)
Quarter: 2022Q1

REPORT INFORMATION
  Report Type: Spontaneous
  Country: US (occurrence: US)
  Receive Date: 20201124
  Receipt Date: 20220124
  Transmission Date: 20220423
  Serious: Yes (Hospitalization, Other)
  Sender: FDA-Public Use
  Company Number: US-PFIZER INC-2020109357

PATIENT
  Age: 53 Year
  Sex: Female

DRUGS (2)
  1. PREMPRO [Suspect]
     Active Substance: ESTROGENS, CONJUGATED\MEDROXYPROGESTERONE ACETATE
     Indication: Menopause
     Dosage: 1 TABLET, DAILY
  2. PREMPRO [Suspect]
     Active Substance: ESTROGENS, CONJUGATED\MEDROXYPROGESTERONE ACETATE
     Indication: Hormone replacement therapy

REACTIONS (11)
  - Illness [Unknown]
  - Surgery [Unknown]
  - Confusional state [Unknown]
  - Emotional disorder [Unknown]
  - Night sweats [Unknown]
  - Hyperhidrosis [Unknown]
  - Illness [Unknown]
  - Feeling abnormal [Unknown]
  - Seasonal allergy [Unknown]
  - Malaise [Unknown]
  - Product prescribing error [Unknown]
